FAERS Safety Report 8071174-9 (Version None)
Quarter: 2012Q1

REPORT INFORMATION
  Report Type: 
  Country: None (occurrence: None)
  Receive Date: 20120125
  Receipt Date: 20120116
  Transmission Date: 20120608
  Serious: Yes (Other)
  Sender: FDA-Public Use
  Company Number: PHFR2012GB000671

PATIENT
  Sex: Male

DRUGS (1)
  1. CLOZARIL [Suspect]
     Indication: SCHIZOPHRENIA
     Route: 048
     Dates: start: 20010515

REACTIONS (6)
  - FALL [None]
  - CONFUSIONAL STATE [None]
  - NEUTROPHIL COUNT DECREASED [None]
  - EOSINOPHIL COUNT INCREASED [None]
  - MALAISE [None]
  - PLATELET COUNT DECREASED [None]
